FAERS Safety Report 9083206 (Version 1)
Quarter: 2013Q1

REPORT INFORMATION
  Report Type: Spontaneous
  Country: US (occurrence: US)
  Receive Date: 20130130
  Receipt Date: 20130130
  Transmission Date: 20140127
  Serious: Yes (Hospitalization)
  Sender: FDA-Public Use
  Company Number: US-ABBOTT-12P-163-0978380-00

PATIENT
  Age: 15 Year
  Sex: Female
  Weight: 79.45 kg

DRUGS (2)
  1. HUMIRA [Suspect]
     Indication: SPONDYLITIS
     Dates: start: 20120823, end: 20120906
  2. NAPROXEN [Concomitant]
     Indication: SPONDYLITIS

REACTIONS (4)
  - Multiple sclerosis [Not Recovered/Not Resolved]
  - Nausea [Unknown]
  - Vomiting [Unknown]
  - Off label use [Not Recovered/Not Resolved]
